FAERS Safety Report 8153552-2 (Version None)
Quarter: 2012Q1

REPORT INFORMATION
  Report Type: 
  Country: None (occurrence: None)
  Receive Date: 20120103
  Receipt Date: 20110906
  Transmission Date: 20120608
  Serious: No
  Sender: FDA-Public Use
  Company Number: AE-2011-001024

PATIENT
  Age: 57 Year
  Sex: Female
  Weight: 54.4316 kg

DRUGS (3)
  1. RIBAVIRIN [Concomitant]
  2. PEGINTERFERON (PEGINTERFERON ALFA-2A) [Concomitant]
  3. INCIVEK [Suspect]
     Dosage: (3 IN 1 D),ORAL
     Route: 048
     Dates: start: 20110819

REACTIONS (2)
  - DRUG ERUPTION [None]
  - NAUSEA [None]
